FAERS Safety Report 6018130-X (Version None)
Quarter: 2008Q4

REPORT INFORMATION
  Report Type: 
  Country: None (occurrence: None)
  Receive Date: 20081223
  Receipt Date: 20081216
  Transmission Date: 20090506
  Serious: Yes (Hospitalization)
  Sender: FDA-Public Use
  Company Number: US-ELI_LILLY_AND_COMPANY-US200812004177

PATIENT
  Sex: Female

DRUGS (3)
  1. HUMALOG MIX 75/25 [Suspect]
     Indication: TYPE 1 DIABETES MELLITUS
     Dosage: 30 U, UNK
     Dates: start: 20030101
  2. HUMALOG MIX 75/25 [Suspect]
  3. PLAVIX [Concomitant]
     Dates: start: 20030101

REACTIONS (4)
  - IMPLANTABLE DEFIBRILLATOR INSERTION [None]
  - INJECTION SITE DISCOLOURATION [None]
  - PRODUCT QUALITY ISSUE [None]
  - THROMBOSIS [None]
